FAERS Safety Report 4836782-4 (Version None)
Quarter: 2005Q4

REPORT INFORMATION
  Report Type: 
  Country: None (occurrence: None)
  Receive Date: 20051121
  Receipt Date: 20051117
  Transmission Date: 20060501
  Serious: Yes (Disabling, Other)
  Sender: FDA-Public Use
  Company Number: 22269

PATIENT
  Age: 44 Year
  Sex: Male

DRUGS (2)
  1. CYTARABINE [Suspect]
     Indication: NON-HODGKIN'S LYMPHOMA
     Dosage: 2 DOSES
     Dates: start: 20051001
  2. DHAP THERAPY [Concomitant]

REACTIONS (1)
  - DEAFNESS [None]
